FAERS Safety Report 13378065 (Version 1)
Quarter: 2017Q1

REPORT INFORMATION
  Report Type: Spontaneous
  Country: JP (occurrence: JP)
  Receive Date: 20170328
  Receipt Date: 20170328
  Transmission Date: 20170429
  Serious: Yes (Other)
  Sender: FDA-Public Use
  Company Number: JP-HQ SPECIALTY-JP-2017INT000084

PATIENT
  Age: 65 Year
  Sex: Female

DRUGS (6)
  1. CAPECITABINE. [Suspect]
     Active Substance: CAPECITABINE
     Indication: HER-2 POSITIVE GASTRIC CANCER
     Dosage: 2400 MG, UNK
  2. TRASTUZUMAB [Suspect]
     Active Substance: TRASTUZUMAB
     Indication: HER-2 POSITIVE GASTRIC CANCER
     Dosage: 8 MG/KG, UNK
  3. TRASTUZUMAB [Suspect]
     Active Substance: TRASTUZUMAB
     Dosage: 8 MG/KG, UNK RESTARTED 2 MONTHS POST SURGERY.
  4. CISPLATIN. [Suspect]
     Active Substance: CISPLATIN
     Indication: HER-2 POSITIVE GASTRIC CANCER
     Dosage: 80 MG/M2, UNK
  5. CISPLATIN. [Suspect]
     Active Substance: CISPLATIN
     Dosage: 80 MG/M2, UNK RESTARTED 2 MONTHS POST SURGERY.
  6. CAPECITABINE. [Suspect]
     Active Substance: CAPECITABINE
     Dosage: 2400 MG, RESTARTED 2 MONTHS POST SURGERY.

REACTIONS (2)
  - Peritonitis [Recovered/Resolved]
  - Gastric perforation [Recovered/Resolved]
